FAERS Safety Report 11162943 (Version 1)
Quarter: 2015Q2

REPORT INFORMATION
  Report Type: Spontaneous
  Country: US (occurrence: None)
  Receive Date: 20150603
  Receipt Date: 20150603
  Transmission Date: 20150821
  Serious: Yes (Hospitalization)
  Sender: FDA-Public Use
  Company Number: None

PATIENT
  Age: 27 Year
  Sex: Male
  Weight: 54.89 kg

DRUGS (1)
  1. EXJADE [Suspect]
     Active Substance: DEFERASIROX
     Indication: IRON OVERLOAD
     Dosage: 5 TABS
     Route: 048
     Dates: start: 20150427, end: 20150601

REACTIONS (2)
  - Hip arthroplasty [None]
  - Therapy cessation [None]

NARRATIVE: CASE EVENT DATE: 20150601
